FAERS Safety Report 6017913-X (Version None)
Quarter: 2008Q4

REPORT INFORMATION
  Report Type: 
  Country: None (occurrence: None)
  Receive Date: 20081223
  Receipt Date: 20081217
  Transmission Date: 20090506
  Serious: Yes (Other)
  Sender: FDA-Public Use
  Company Number: US-JNJFOC-20081205097

PATIENT
  Sex: Male
  Weight: 86.2 kg

DRUGS (8)
  1. TOPAMAX [Suspect]
     Route: 048
  2. TOPAMAX [Suspect]
     Indication: MIGRAINE PROPHYLAXIS
     Route: 048
  3. KEPPRA [Interacting]
     Indication: CONVULSION
     Route: 048
  4. GABAPENTIN [Interacting]
  5. GABAPENTIN [Interacting]
     Indication: NEUROPATHY PERIPHERAL
  6. LYRICA [Suspect]
     Indication: NEUROPATHY PERIPHERAL
     Route: 048
  7. PLAVIX [Concomitant]
     Indication: DRUG USE FOR UNKNOWN INDICATION
  8. FABRAZYME [Concomitant]
     Indication: MIGRAINE

REACTIONS (13)
  - AMNESIA [None]
  - APHASIA [None]
  - ASTHMA [None]
  - CONFUSIONAL STATE [None]
  - CONVULSION [None]
  - COUGH [None]
  - DEPRESSION [None]
  - DISTURBANCE IN ATTENTION [None]
  - DRUG INTERACTION [None]
  - DRY MOUTH [None]
  - IMPAIRED WORK ABILITY [None]
  - OVERDOSE [None]
  - SOMNOLENCE [None]
